FAERS Safety Report 7991755-8 (Version None)
Quarter: 2011Q4

REPORT INFORMATION
  Report Type: 
  Country: None (occurrence: None)
  Receive Date: 20111219
  Receipt Date: 20111208
  Transmission Date: 20120403
  Serious: Yes (Hospitalization, Other)
  Sender: FDA-Public Use
  Company Number: PHHY2011TR106398

PATIENT
  Age: 52 Year
  Sex: Female

DRUGS (1)
  1. TASIGNA [Suspect]
     Indication: CHRONIC MYELOID LEUKAEMIA
     Dosage: 400 MG, DAILY
     Route: 048
     Dates: start: 20110415, end: 20111205

REACTIONS (5)
  - CHEST PAIN [None]
  - NOCTURNAL DYSPNOEA [None]
  - ANGINA PECTORIS [None]
  - INSOMNIA [None]
  - DYSPNOEA [None]
